FAERS Safety Report 11878801 (Version 1)
Quarter: 2015Q4

REPORT INFORMATION
  Report Type: Spontaneous
  Country: MX (occurrence: MX)
  Receive Date: 20151230
  Receipt Date: 20151230
  Transmission Date: 20160305
  Serious: Yes (Other)
  Sender: FDA-Public Use
  Company Number: MX-TAKEDA-2015MPI008763

PATIENT

DRUGS (1)
  1. VELCADE [Suspect]
     Active Substance: BORTEZOMIB
     Indication: CHRONIC LYMPHOCYTIC LEUKAEMIA
     Dosage: UNK
     Route: 065

REACTIONS (19)
  - Splenomegaly [Unknown]
  - Gastrointestinal disorder [Unknown]
  - Vomiting [Unknown]
  - Diabetes mellitus [Unknown]
  - Anaemia [Unknown]
  - Infection [Unknown]
  - Asthenia [Unknown]
  - Coagulopathy [Unknown]
  - Haemorrhage [Unknown]
  - Hypertension [Unknown]
  - Abdominal pain upper [Unknown]
  - Thrombocytopenia [Unknown]
  - Chronic lymphocytic leukaemia [Unknown]
  - Night sweats [Unknown]
  - Lymphadenopathy [Unknown]
  - Product use issue [Unknown]
  - Off label use [Unknown]
  - Weight decreased [Unknown]
  - Pyrexia [Unknown]
